FAERS Safety Report 5536994-0 (Version None)
Quarter: 2007Q4

REPORT INFORMATION
  Report Type: 
  Country: None (occurrence: None)
  Receive Date: 20071207
  Receipt Date: 20071129
  Transmission Date: 20080405
  Serious: Yes (Hospitalization)
  Sender: FDA-Public Use
  Company Number: US-BRISTOL-MYERS SQUIBB COMPANY-13732334

PATIENT
  Age: 53 Year
  Sex: Male

DRUGS (2)
  1. ERBITUX [Suspect]
     Indication: RECTAL CANCER METASTATIC
     Dates: start: 20050101
  2. BEVACIZUMAB [Suspect]
     Indication: RECTAL CANCER METASTATIC
     Dates: start: 20050101

REACTIONS (2)
  - DERMATITIS ACNEIFORM [None]
  - HYPERGLYCAEMIA [None]
